FAERS Safety Report 7020330-7 (Version None)
Quarter: 2010Q3

REPORT INFORMATION
  Report Type: 
  Country: None (occurrence: None)
  Receive Date: 20100929
  Receipt Date: 20100823
  Transmission Date: 20110219
  Serious: No
  Sender: FDA-Public Use
  Company Number: US-BAYER-201020381BCC

PATIENT
  Age: 70 Year
  Sex: Female
  Weight: 91 kg

DRUGS (15)
  1. ALEVE (CAPLET) [Suspect]
     Indication: ARTHRALGIA
     Dosage: TOTAL DAILY DOSE: 440 MG  UNIT DOSE: 220 MG
     Route: 048
  2. METFORMIN [Concomitant]
     Route: 065
  3. LANTUS [Concomitant]
     Route: 065
  4. REGLAN [Concomitant]
     Route: 065
  5. MELOXICAM [Concomitant]
     Route: 065
  6. LORTAB [Concomitant]
     Route: 065
  7. ZOCOR [Concomitant]
     Route: 065
  8. SYNTHROID [Concomitant]
     Route: 065
  9. HYDROCHLOROTHIAZIDE [Concomitant]
     Route: 065
  10. PAXIL [Concomitant]
     Route: 065
  11. GLIMEPIRIDE [Concomitant]
     Route: 065
  12. CENTRUM SILVER [Concomitant]
     Route: 065
  13. QUINAPRIL [Concomitant]
     Route: 065
  14. EQUATE 81MG ASPIRIN [Concomitant]
     Route: 065
  15. XANAX [Concomitant]
     Route: 065

REACTIONS (1)
  - ABDOMINAL PAIN UPPER [None]
